FAERS Safety Report 23320979 (Version 1)
Quarter: 2023Q4

REPORT INFORMATION
  Report Type: Spontaneous
  Country: US (occurrence: US)
  Receive Date: 20231220
  Receipt Date: 20231220
  Transmission Date: 20240109
  Serious: No
  Sender: FDA-Public Use
  Company Number: US-GSKCCFUS-Case-01823654_AE-101988

PATIENT

DRUGS (1)
  1. BREXAFEMME [Suspect]
     Active Substance: IBREXAFUNGERP CITRATE
     Indication: Product used for unknown indication
     Dosage: UNK
     Route: 065

REACTIONS (7)
  - Generalised oedema [Unknown]
  - Nausea [Unknown]
  - Urticaria [Unknown]
  - Flushing [Unknown]
  - Rash [Unknown]
  - Throat tightness [Unknown]
  - Hypersensitivity [Unknown]
